FAERS Safety Report 5045641-6 (Version None)
Quarter: 2006Q3

REPORT INFORMATION
  Report Type: 
  Country: None (occurrence: None)
  Receive Date: 20060707
  Receipt Date: 20060629
  Transmission Date: 20061208
  Serious: Yes (Hospitalization)
  Sender: FDA-Public Use
  Company Number: US-JNJFOC-20060606686

PATIENT
  Sex: Female
  Weight: 52.16 kg

DRUGS (16)
  1. REMICADE [Suspect]
     Indication: RHEUMATOID ARTHRITIS
     Route: 042
  2. PREDNISONE TAB [Concomitant]
  3. COZAAR [Concomitant]
  4. COREG [Concomitant]
  5. AMIODARONE HCL [Concomitant]
  6. PROTONIX [Concomitant]
  7. LASIX [Concomitant]
  8. SYNTHROID [Concomitant]
  9. COUMADIN [Concomitant]
  10. ZOCOR [Concomitant]
  11. CALCIUM GLUCONATE [Concomitant]
  12. MULTIVITAMIN [Concomitant]
  13. SPIRIVA [Concomitant]
     Route: 055
  14. FLOVENT [Concomitant]
     Route: 055
  15. FOSAMAX [Concomitant]
  16. METHOTREXATE [Concomitant]

REACTIONS (2)
  - CARDIAC FAILURE CONGESTIVE [None]
  - VENTRICULAR TACHYCARDIA [None]
